FAERS Safety Report 6099655-8 (Version None)
Quarter: 2009Q1

REPORT INFORMATION
  Report Type: 
  Country: None (occurrence: None)
  Receive Date: 20090303
  Receipt Date: 20090129
  Transmission Date: 20090719
  Serious: No
  Sender: FDA-Public Use
  Company Number: US-BAYER-200813181BCC

PATIENT
  Age: 57 Year
  Sex: Female
  Weight: 77 kg

DRUGS (3)
  1. ALEVE [Suspect]
     Indication: ARTHRALGIA
     Dosage: TOTAL DAILY DOSE: 440 MG  UNIT DOSE: 220 MG
     Route: 048
     Dates: start: 20080718, end: 20080718
  2. COSAMIN DS [Concomitant]
  3. NAPROXEN [Concomitant]

REACTIONS (3)
  - EYE SWELLING [None]
  - LOCALISED OEDEMA [None]
  - SWELLING FACE [None]
